FAERS Safety Report 6806085-7 (Version None)
Quarter: 2010Q2

REPORT INFORMATION
  Report Type: 
  Country: None (occurrence: None)
  Receive Date: 20100629
  Receipt Date: 20080119
  Transmission Date: 20101027
  Serious: No
  Sender: FDA-Public Use
  Company Number: US-PFIZER INC-2007082654

PATIENT
  Sex: Male
  Weight: 125 kg

DRUGS (6)
  1. VIAGRA [Suspect]
     Indication: ERECTILE DYSFUNCTION
  2. VYTORIN [Concomitant]
  3. COREG [Concomitant]
  4. AMARYL [Concomitant]
  5. LISINOPRIL [Concomitant]
  6. CELEXA [Concomitant]
     Indication: EJACULATION FAILURE

REACTIONS (2)
  - EJACULATION FAILURE [None]
  - RETROGRADE EJACULATION [None]
